FAERS Safety Report 24771782 (Version 1)
Quarter: 2024Q4

REPORT INFORMATION
  Report Type: Other
  Country: IE (occurrence: IE)
  Receive Date: 20241224
  Receipt Date: 20241224
  Transmission Date: 20250115
  Serious: Yes (Other)
  Sender: BIOCON
  Company Number: None

PATIENT

DRUGS (4)
  1. ADALIMUMAB [Suspect]
     Active Substance: ADALIMUMAB
     Indication: Colitis ulcerative
     Dosage: 80 MILLIGRAM STARTING DOSE, SOLUTION FOR INJECTION
     Route: 065
  2. ADALIMUMAB [Suspect]
     Active Substance: ADALIMUMAB
     Dosage: 40 MILLIGRAM, Q2W
     Route: 065
  3. INFLIXIMAB [Suspect]
     Active Substance: INFLIXIMAB
     Indication: Colitis ulcerative
     Dosage: UNK
     Route: 065
  4. PENTASA [Concomitant]
     Active Substance: MESALAMINE
     Indication: Colitis ulcerative
     Dosage: 2 GRAM, Q12H, TWICE DAILY
     Route: 065

REACTIONS (6)
  - Organising pneumonia [Recovered/Resolved]
  - Flushing [Unknown]
  - Hilar lymphadenopathy [Unknown]
  - Microcytic anaemia [Recovered/Resolved]
  - Dyspnoea [Unknown]
  - Vomiting [Unknown]
